FAERS Safety Report 5915808-0 (Version None)
Quarter: 2008Q4

REPORT INFORMATION
  Report Type: 
  Country: None (occurrence: None)
  Receive Date: 20081010
  Receipt Date: 20081002
  Transmission Date: 20090506
  Serious: Yes (Other)
  Sender: FDA-Public Use
  Company Number: FR-PFIZER INC-2008075548

PATIENT
  Sex: Male
  Weight: 98 kg

DRUGS (5)
  1. TAHOR [Suspect]
     Indication: STENT PLACEMENT
     Route: 048
     Dates: start: 20070416, end: 20080613
  2. TAHOR [Suspect]
     Indication: INFARCTION
  3. KARDEGIC [Concomitant]
     Route: 048
     Dates: start: 20070416
  4. ATACAND [Concomitant]
     Route: 048
     Dates: start: 20070416
  5. CELECTOL [Concomitant]
     Route: 048
     Dates: start: 20070416

REACTIONS (6)
  - BLOOD CREATINE PHOSPHOKINASE INCREASED [None]
  - CYTOLYTIC HEPATITIS [None]
  - MUSCLE SPASMS [None]
  - MYALGIA [None]
  - RHABDOMYOLYSIS [None]
  - TETANY [None]
